FAERS Safety Report 9117366 (Version 1)
Quarter: 2013Q1

REPORT INFORMATION
  Report Type: Spontaneous
  Country: US (occurrence: US)
  Receive Date: 20130225
  Receipt Date: 20130225
  Transmission Date: 20140127
  Serious: No
  Sender: FDA-Public Use
  Company Number: US-BIOGENIDEC-2013BI017254

PATIENT
  Sex: Female
  Weight: 62 kg

DRUGS (4)
  1. AVONEX [Suspect]
     Indication: MULTIPLE SCLEROSIS
     Route: 030
     Dates: start: 20120912
  2. AVONEX [Suspect]
     Indication: MULTIPLE SCLEROSIS
     Route: 030
     Dates: start: 201210
  3. CYMBALTA [Concomitant]
     Indication: PRODUCT USED FOR UNKNOWN INDICATION
  4. BACLOFEN [Concomitant]
     Indication: PRODUCT USED FOR UNKNOWN INDICATION

REACTIONS (21)
  - Balance disorder [Unknown]
  - Fall [Unknown]
  - Vision blurred [Unknown]
  - Photophobia [Unknown]
  - Urinary incontinence [Unknown]
  - Muscle contractions involuntary [Unknown]
  - Weight decreased [Unknown]
  - Nuclear magnetic resonance imaging brain abnormal [Unknown]
  - Multiple sclerosis [Unknown]
  - Pupillary disorder [Unknown]
  - Gait disturbance [Unknown]
  - Temperature intolerance [Unknown]
  - Thermohypoaesthesia [Unknown]
  - Dysphagia [Unknown]
  - Muscular weakness [Unknown]
  - Depression [Unknown]
  - Alopecia [Unknown]
  - Myalgia [Unknown]
  - Influenza like illness [Unknown]
  - Chills [Unknown]
  - Nausea [Unknown]
